FAERS Safety Report 25187837 (Version 3)
Quarter: 2025Q2

REPORT INFORMATION
  Report Type: Report from Study
  Country: US (occurrence: US)
  Receive Date: 20250411
  Receipt Date: 20250507
  Transmission Date: 20250717
  Serious: Yes (Hospitalization, Other)
  Sender: AMGEN
  Company Number: US-AMGEN-USASP2025067507

PATIENT
  Age: 39 Year
  Sex: Female

DRUGS (1)
  1. KRYSTEXXA [Suspect]
     Active Substance: PEGLOTICASE
     Indication: Product used for unknown indication
     Route: 040
     Dates: start: 20250403

REACTIONS (3)
  - Dyspnoea [Unknown]
  - Transfusion [Unknown]
  - Chromaturia [Unknown]

NARRATIVE: CASE EVENT DATE: 20250401
